FAERS Safety Report 8461478-X (Version None)
Quarter: 2012Q2

REPORT INFORMATION
  Report Type: 
  Country: None (occurrence: None)
  Receive Date: 20120625
  Receipt Date: 20120613
  Transmission Date: 20120825
  Serious: Yes (Hospitalization)
  Sender: FDA-Public Use
  Company Number: GB-JNJFOC-20120405387

PATIENT
  Sex: Female
  Weight: 54 kg

DRUGS (4)
  1. REMICADE [Suspect]
     Route: 042
     Dates: start: 20120410, end: 20120410
  2. REMICADE [Suspect]
     Indication: CROHN'S DISEASE
     Route: 042
     Dates: start: 20100518
  3. AZATHIOPRINE [Concomitant]
  4. REMICADE [Suspect]
     Route: 042
     Dates: start: 20120608

REACTIONS (5)
  - DIZZINESS [None]
  - NAUSEA [None]
  - INFUSION RELATED REACTION [None]
  - HEADACHE [None]
  - CONSTIPATION [None]
